FAERS Safety Report 11184470 (Version 1)
Quarter: 2015Q2

REPORT INFORMATION
  Report Type: Spontaneous
  Country: None (occurrence: None)
  Receive Date: 20150611
  Receipt Date: 20150611
  Transmission Date: 20150821
  Serious: Yes (Other)
  Sender: FDA-Public Use
  Company Number: None

PATIENT
  Age: 63 Year
  Sex: Female

DRUGS (2)
  1. ESTRADIOL PATCH 0.0375MG MYLAN [Suspect]
     Active Substance: ESTRADIOL
     Indication: HORMONE REPLACEMENT THERAPY
     Dosage: .05MG/24 HR?2X/WK?TOPICAL/PATCH ??
     Route: 061
     Dates: start: 20150425, end: 20150502
  2. ESTRADIOL PATCH 0.0375MG MYLAN [Suspect]
     Active Substance: ESTRADIOL
     Indication: MENOPAUSE
     Dosage: .075MG/HR ?2X/WK?TOPICAL/PATCH??
     Route: 061

REACTIONS (4)
  - Uterine spasm [None]
  - Rash [None]
  - Postmenopausal haemorrhage [None]
  - Unevaluable event [None]

NARRATIVE: CASE EVENT DATE: 201504
